FAERS Safety Report 8370960-5 (Version None)
Quarter: 2012Q2

REPORT INFORMATION
  Report Type: 
  Country: None (occurrence: None)
  Receive Date: 20120518
  Receipt Date: 20120510
  Transmission Date: 20120825
  Serious: Yes (Other)
  Sender: FDA-Public Use
  Company Number: US-MERCK-1205USA02050

PATIENT
  Sex: Female

DRUGS (3)
  1. FOSAMAX [Suspect]
     Route: 048
     Dates: start: 20010501, end: 20050501
  2. BONIVA [Suspect]
     Route: 065
     Dates: start: 20070501, end: 20100501
  3. FORTEO [Suspect]
     Route: 065
     Dates: start: 20050501, end: 20070501

REACTIONS (2)
  - ATYPICAL FEMUR FRACTURE [None]
  - FEMUR FRACTURE [None]
